FAERS Safety Report 25883305 (Version 2)
Quarter: 2025Q4

REPORT INFORMATION
  Report Type: Spontaneous
  Country: US (occurrence: US)
  Receive Date: 20251006
  Receipt Date: 20251028
  Transmission Date: 20260118
  Serious: Yes (Death, Hospitalization, Other)
  Sender: ORPHAZYME
  Company Number: US-ZEVRA DENMARK A/S-ORP-000570

PATIENT
  Sex: Female

DRUGS (14)
  1. MIPLYFFA [Suspect]
     Active Substance: ARIMOCLOMOL CITRATE
     Indication: Niemann-Pick disease
     Dosage: 62 MILLIGRAM, TID
     Route: 048
     Dates: start: 202406
  2. KEPPRA [Concomitant]
     Active Substance: LEVETIRACETAM
     Indication: Seizure
     Dosage: 800 MILLIGRAM, BID
     Dates: start: 20250910
  3. KEPPRA [Concomitant]
     Active Substance: LEVETIRACETAM
     Dosage: 750 MILLIGRAM, BID 7.5 ML (750 MG) ORAL 2 TIMES A DAY
     Route: 048
  4. ROBINUL [Concomitant]
     Active Substance: GLYCOPYRROLATE
     Indication: Drooling
     Dosage: 500 MICROGRAM, TID
  5. ROBINUL [Concomitant]
     Active Substance: GLYCOPYRROLATE
     Dosage: 0.5 MILLIGRAM, TID
  6. ADVAIR HFA [Concomitant]
     Active Substance: FLUTICASONE PROPIONATE\SALMETEROL XINAFOATE
     Indication: Product used for unknown indication
     Dosage: 2 PUFFS IN THE MORNING AND 2 PUFFS IN THE EVENING
  7. VALTOCO [Concomitant]
     Active Substance: DIAZEPAM
     Indication: Product used for unknown indication
     Dosage: UNK
     Route: 045
  8. CHOLECALCIFEROL [Concomitant]
     Active Substance: CHOLECALCIFEROL
     Indication: Product used for unknown indication
     Dosage: 10 MICROGRAM, QD (400 UNIT) 2.5 TABLETS
  9. ALBUTEROL SULFATE [Concomitant]
     Active Substance: ALBUTEROL SULFATE
     Indication: Wheezing
     Dosage: 90 MICROGRAM, Q4H,2 PUFFS
  10. ALBUTEROL SULFATE [Concomitant]
     Active Substance: ALBUTEROL SULFATE
     Indication: Dyspnoea
  11. VIVACTIL [Concomitant]
     Active Substance: PROTRIPTYLINE HYDROCHLORIDE
     Indication: Cataplexy
     Dosage: 5 MILLIGRAM, BID 1 TABLET BY MOUTH IN MORNING AND 1 TABLET BEFORE BEDTIME
  12. MIRALAX [Concomitant]
     Active Substance: POLYETHYLENE GLYCOL 3350
     Indication: Product used for unknown indication
     Dosage: 1 SCOOP DAILY AS DIRECTED
  13. ZEGERID [Concomitant]
     Active Substance: OMEPRAZOLE\SODIUM BICARBONATE
     Indication: Product used for unknown indication
     Dosage: 1 PACKET MIXED WITH 5 TO 10 ML OF WATER BY MOUTH ON AN EMPTY STOMACH
     Route: 048
  14. OMEPRAZOLE MAGNESIUM [Concomitant]
     Active Substance: OMEPRAZOLE MAGNESIUM
     Indication: Product used for unknown indication
     Dosage: 2 PACKETS 2 X DAILY

REACTIONS (5)
  - Death [Fatal]
  - Pneumonia [Unknown]
  - Sepsis [Unknown]
  - Hip fracture [Unknown]
  - Disease progression [Unknown]

NARRATIVE: CASE EVENT DATE: 20240101
